FAERS Safety Report 10383039 (Version 1)
Quarter: 2014Q3

REPORT INFORMATION
  Report Type: Spontaneous
  Country: US (occurrence: US)
  Receive Date: 20140813
  Receipt Date: 20140813
  Transmission Date: 20150326
  Serious: No
  Sender: FDA-Public Use
  Company Number: US-SA-2014SA094246

PATIENT
  Age: 34 Year
  Sex: Male

DRUGS (2)
  1. FABRAZYME [Suspect]
     Active Substance: AGALSIDASE BETA
     Indication: FABRY^S DISEASE
     Dosage: LAST INFUSION ON 30 JUN2014 AND USED 2X5 MG VIALS OF E3031Y05 AND 2X35MG VIALS OD E3021Y03
     Route: 042
  2. FABRAZYME [Suspect]
     Active Substance: AGALSIDASE BETA
     Indication: FABRY^S DISEASE
     Dosage: LAST INFUSION ON 30 JUN2014 AND USED 2X5 MG VIALS OF E3031Y05 AND 2X35MG VIALS OD E3021Y03
     Route: 042

REACTIONS (1)
  - Headache [Unknown]

NARRATIVE: CASE EVENT DATE: 2014
